FAERS Safety Report 8439339-1 (Version None)
Quarter: 2012Q2

REPORT INFORMATION
  Report Type: 
  Country: None (occurrence: None)
  Receive Date: 20120615
  Receipt Date: 20120612
  Transmission Date: 20120825
  Serious: Yes (Death)
  Sender: FDA-Public Use
  Company Number: PHEH2012US011933

PATIENT
  Sex: Male

DRUGS (9)
  1. OXYCONTIN [Concomitant]
     Dosage: 30 MG, UNK
  2. GABAPENTIN [Concomitant]
     Dosage: 100 MG, UNK
  3. MAGNESIUM [Concomitant]
     Dosage: 300 MG, UNK
  4. RAPAMUNE [Concomitant]
     Dosage: 1 MG, UNK
     Route: 048
  5. CELLCEPT [Concomitant]
     Dosage: 250 MG, UNK
  6. TASIGNA [Suspect]
     Dosage: 300 MG, BID
     Route: 048
  7. ACYCLOVIR [Concomitant]
     Dosage: 400 MG, UNK
  8. CLONAZEPAM [Concomitant]
     Dosage: 0.5 MG, UNK
  9. FLUCONAZOLE [Concomitant]
     Dosage: 100 MG, UNK

REACTIONS (1)
  - DEATH [None]
